FAERS Safety Report 16363724 (Version 1)
Quarter: 2019Q2

REPORT INFORMATION
  Report Type: Spontaneous
  Country: CA (occurrence: CA)
  Receive Date: 20190528
  Receipt Date: 20190528
  Transmission Date: 20190711
  Serious: Yes (Other)
  Sender: FDA-Public Use
  Company Number: CA-TEVA-2019-CA-1054325

PATIENT
  Age: 71 Year
  Sex: Male

DRUGS (1)
  1. SOTALOL. [Suspect]
     Active Substance: SOTALOL
     Route: 048

REACTIONS (4)
  - Flushing [Unknown]
  - Tachycardia [Unknown]
  - Blood pressure increased [Unknown]
  - Dizziness [Unknown]
